FAERS Safety Report 13264524 (Version 1)
Quarter: 2017Q1

REPORT INFORMATION
  Report Type: Spontaneous
  Country: US (occurrence: US)
  Receive Date: 20170223
  Receipt Date: 20170223
  Transmission Date: 20170428
  Serious: Yes (Other)
  Sender: FDA-Public Use
  Company Number: None

PATIENT
  Age: 37 Year
  Sex: Male
  Weight: 81 kg

DRUGS (2)
  1. HYDROCODONE 10/325 [Suspect]
     Active Substance: ACETAMINOPHEN\HYDROCODONE BITARTRATE
     Indication: HEADACHE
     Dosage: ?          QUANTITY:120 TABLET(S);?
     Route: 048
     Dates: start: 20170215, end: 20170222
  2. HYDROCODONE 10/325 [Suspect]
     Active Substance: ACETAMINOPHEN\HYDROCODONE BITARTRATE
     Indication: BACK PAIN
     Dosage: ?          QUANTITY:120 TABLET(S);?
     Route: 048
     Dates: start: 20170215, end: 20170222

REACTIONS (8)
  - Drug ineffective [None]
  - Suspected counterfeit product [None]
  - Product taste abnormal [None]
  - Product substitution issue [None]
  - No reaction on previous exposure to drug [None]
  - Dizziness [None]
  - Product physical issue [None]
  - Fatigue [None]

NARRATIVE: CASE EVENT DATE: 20170215
